FAERS Safety Report 6039576-X (Version None)
Quarter: 2009Q1

REPORT INFORMATION
  Report Type: 
  Country: None (occurrence: None)
  Receive Date: 20090116
  Receipt Date: 20090114
  Transmission Date: 20090719
  Serious: Yes (Other)
  Sender: FDA-Public Use
  Company Number: TW-JNJFOC-20090102762

PATIENT
  Age: 50 Year
  Sex: Male
  Weight: 76 kg

DRUGS (2)
  1. DURAGESIC-100 [Suspect]
     Indication: CANCER PAIN
     Route: 062
  2. MORPHINE [Suspect]
     Indication: CANCER PAIN
     Route: 042

REACTIONS (4)
  - BRADYCARDIA [None]
  - INAPPROPRIATE SCHEDULE OF DRUG ADMINISTRATION [None]
  - LOSS OF CONSCIOUSNESS [None]
  - MIOSIS [None]
